FAERS Safety Report 24210082 (Version 1)
Quarter: 2024Q3

REPORT INFORMATION
  Report Type: Report from Study
  Country: US (occurrence: US)
  Receive Date: 20240814
  Receipt Date: 20240814
  Transmission Date: 20241016
  Serious: Yes (Hospitalization)
  Sender: GILEAD
  Company Number: US-GILEAD-2024-0683793

PATIENT
  Age: 31 Year
  Sex: Female
  Weight: 63.9 kg

DRUGS (14)
  1. AMBRISENTAN [Suspect]
     Active Substance: AMBRISENTAN
     Indication: Pulmonary arterial hypertension
     Dosage: UNK
     Route: 065
  2. REMODULIN [Suspect]
     Active Substance: TREPROSTINIL
     Indication: Pulmonary arterial hypertension
     Dosage: 0.016 UG/KG (CONCENTRATION: 1.0 MG/ML)
     Route: 042
     Dates: start: 20230810
  3. REMODULIN [Suspect]
     Active Substance: TREPROSTINIL
     Dosage: 0.012 UG/KG (CONCENTRATION: 1.0 MG/ML)
     Route: 042
  4. REMODULIN [Suspect]
     Active Substance: TREPROSTINIL
     Dosage: 0.014 UG/KG (CONCENTRATION: 1.0 MG/ML)
     Route: 042
  5. OPSUMIT [Suspect]
     Active Substance: MACITENTAN
     Indication: Product used for unknown indication
     Dosage: UNK
     Route: 065
  6. SODIUM CHLORIDE [Concomitant]
     Active Substance: SODIUM CHLORIDE
  7. MAGNESIUM OXIDE [Concomitant]
     Active Substance: MAGNESIUM OXIDE
  8. LASIX [Concomitant]
     Active Substance: FUROSEMIDE
  9. SILDENAFIL CITRATE [Concomitant]
     Active Substance: SILDENAFIL CITRATE
  10. VITAMIN D3 [Concomitant]
     Active Substance: CHOLECALCIFEROL
  11. OXYGEN [Concomitant]
     Active Substance: OXYGEN
  12. LEVOTHYROXINE SODIUM [Concomitant]
     Active Substance: LEVOTHYROXINE SODIUM
  13. DEXAMETHASONE [Concomitant]
     Active Substance: DEXAMETHASONE
  14. PROMETHAZINE DM [Concomitant]
     Active Substance: DEXTROMETHORPHAN HYDROBROMIDE\PROMETHAZINE HYDROCHLORIDE

REACTIONS (11)
  - COVID-19 [Unknown]
  - Heart rate increased [Unknown]
  - Wheezing [Unknown]
  - Pain [Recovering/Resolving]
  - Oropharyngeal pain [Unknown]
  - Gastrooesophageal reflux disease [Unknown]
  - Dyspepsia [Unknown]
  - Polymenorrhagia [Not Recovered/Not Resolved]
  - Nausea [Unknown]
  - Fatigue [Unknown]
  - Headache [Unknown]
